FAERS Safety Report 25098926 (Version 2)
Quarter: 2025Q2

REPORT INFORMATION
  Report Type: Spontaneous
  Country: FR (occurrence: FR)
  Receive Date: 20250320
  Receipt Date: 20250331
  Transmission Date: 20250717
  Serious: Yes (Other)
  Sender: TEVA
  Company Number: FR-EMA-DD-20250227-7482707-053149

PATIENT
  Age: 7 Year
  Sex: Female
  Weight: 24.1 kg

DRUGS (38)
  1. METHOTREXATE [Suspect]
     Active Substance: METHOTREXATE
     Indication: B-cell lymphoma
     Route: 037
     Dates: start: 20230811
  2. ALOXI [Concomitant]
     Active Substance: PALONOSETRON HYDROCHLORIDE
     Indication: Vomiting
     Dosage: 236 MICROGRAM, QD
     Route: 042
     Dates: end: 20230815
  3. DEXAMETHASONE [Concomitant]
     Active Substance: DEXAMETHASONE
     Indication: Product used for unknown indication
     Dosage: 12 MILLIGRAM, QD
     Route: 042
     Dates: start: 20230818, end: 20230818
  4. DEXAMETHASONE [Concomitant]
     Active Substance: DEXAMETHASONE
     Indication: Product used for unknown indication
     Dosage: 12 MILLIGRAM, QD
     Route: 042
     Dates: start: 20230809, end: 20230810
  5. DEXAMETHASONE [Concomitant]
     Active Substance: DEXAMETHASONE
     Indication: Product used for unknown indication
     Dosage: 10 MILLIGRAM, QD
     Route: 042
     Dates: start: 20230828, end: 20230828
  6. OXYGEN [Concomitant]
     Active Substance: OXYGEN
     Indication: Product used for unknown indication
     Route: 065
  7. CARBOPLATIN [Suspect]
     Active Substance: CARBOPLATIN
     Indication: B-cell lymphoma
     Route: 042
     Dates: start: 20230811
  8. INTRATECT [Concomitant]
     Active Substance: HUMAN IMMUNOGLOBULIN G
     Indication: Product used for unknown indication
     Dosage: 10 GRAM, QD
     Route: 042
     Dates: start: 20230822, end: 20230822
  9. RASBURICASE [Concomitant]
     Active Substance: RASBURICASE
     Indication: Product used for unknown indication
     Dosage: 4.7 MILLIGRAM, QD
     Route: 042
     Dates: start: 20230809, end: 20230810
  10. GLOFITAMAB [Suspect]
     Active Substance: GLOFITAMAB
     Indication: B-cell lymphoma
     Route: 042
     Dates: start: 20230818
  11. GLOFITAMAB [Suspect]
     Active Substance: GLOFITAMAB
     Indication: B-cell lymphoma
     Route: 042
     Dates: start: 20230828
  12. IFOSFAMIDE [Suspect]
     Active Substance: IFOSFAMIDE
     Indication: B-cell lymphoma
     Dosage: ON 13/AUG/2023, RECEIVED MOST RECENT DOSE OF IFOSFAMIDE PRIOR TO EVENT
     Route: 042
     Dates: start: 20230811
  13. OBINUTUZUMAB [Suspect]
     Active Substance: OBINUTUZUMAB
     Indication: B-cell lymphoma
     Route: 042
     Dates: start: 20230809
  14. OBINUTUZUMAB [Suspect]
     Active Substance: OBINUTUZUMAB
     Indication: B-cell lymphoma
     Route: 042
     Dates: start: 20230828
  15. OBINUTUZUMAB [Suspect]
     Active Substance: OBINUTUZUMAB
     Indication: B-cell lymphoma
     Route: 042
     Dates: start: 20230810
  16. AMOXICILLIN [Concomitant]
     Active Substance: AMOXICILLIN
     Indication: Gingivitis
     Dosage: 750 MILLIGRAM, TID
     Route: 048
     Dates: start: 20230822, end: 20230828
  17. HYDROCORTISONE [Suspect]
     Active Substance: HYDROCORTISONE
     Indication: B-cell lymphoma
     Route: 037
     Dates: start: 20230811
  18. HYDROCORTISONE [Suspect]
     Active Substance: HYDROCORTISONE
     Indication: B-cell lymphoma
     Dosage: 7.5 MILLIGRAM, QD
     Route: 048
     Dates: start: 20230405
  19. POLARAMINE [Concomitant]
     Active Substance: DEXCHLORPHENIRAMINE MALEATE
     Indication: Product used for unknown indication
     Dosage: 5 MILLIGRAM, QD
     Route: 042
     Dates: start: 20230828, end: 20230828
  20. POLARAMINE [Concomitant]
     Active Substance: DEXCHLORPHENIRAMINE MALEATE
     Indication: Product used for unknown indication
     Dosage: 5 MILLIGRAM, QD
     Route: 042
     Dates: start: 20230818, end: 20230818
  21. POLARAMINE [Concomitant]
     Active Substance: DEXCHLORPHENIRAMINE MALEATE
     Indication: Product used for unknown indication
     Dosage: 5 MILLIGRAM, QD
     Route: 042
     Dates: start: 20230809, end: 20230810
  22. HYDROCORTISONE [Concomitant]
     Active Substance: HYDROCORTISONE
     Indication: Product used for unknown indication
     Route: 048
  23. LENOGRASTIM [Suspect]
     Active Substance: LENOGRASTIM
     Indication: B-cell lymphoma
     Route: 042
     Dates: start: 20230814
  24. LENOGRASTIM [Suspect]
     Active Substance: LENOGRASTIM
     Indication: B-cell lymphoma
     Route: 042
     Dates: start: 20230815
  25. BACTRIM [Concomitant]
     Active Substance: SULFAMETHOXAZOLE\TRIMETHOPRIM
     Indication: Prophylaxis
     Dosage: 600 MILLIGRAM, 3 TIMES/WEEK
     Route: 048
     Dates: start: 202302, end: 20230907
  26. BACTRIM [Concomitant]
     Active Substance: SULFAMETHOXAZOLE\TRIMETHOPRIM
     Indication: Prophylaxis
     Route: 065
     Dates: start: 20230907
  27. HALDOL [Concomitant]
     Active Substance: HALOPERIDOL
     Indication: Vomiting
     Dosage: 10 GTT DROPS, QD; HALDOL [HALOPERIDOL]
     Route: 048
     Dates: start: 20230811, end: 20230811
  28. CYTARABINE [Suspect]
     Active Substance: CYTARABINE
     Indication: B-cell lymphoma
     Route: 037
     Dates: start: 20230811
  29. MESNA [Suspect]
     Active Substance: MESNA
     Indication: B-cell lymphoma
     Dosage: 530  MG, QD
     Route: 042
     Dates: start: 20230811
  30. MESNA [Suspect]
     Active Substance: MESNA
     Indication: B-cell lymphoma
     Route: 042
     Dates: start: 20230811
  31. DOLIPRANE [Concomitant]
     Active Substance: ACETAMINOPHEN
     Indication: Pain
     Dosage: 300 MILLIGRAM, QD
     Route: 048
     Dates: start: 20230810, end: 20230813
  32. DOLIPRANE [Concomitant]
     Active Substance: ACETAMINOPHEN
     Indication: Pain
     Route: 065
     Dates: start: 20230809, end: 20230828
  33. ACETAMINOPHEN [Concomitant]
     Active Substance: ACETAMINOPHEN
     Indication: Product used for unknown indication
     Dosage: 350 MILLIGRAM, QD
     Route: 048
     Dates: start: 20230818, end: 20230818
  34. ACETAMINOPHEN [Concomitant]
     Active Substance: ACETAMINOPHEN
     Indication: Product used for unknown indication
     Dosage: 350 MILLIGRAM, QD
     Route: 048
     Dates: start: 20230809, end: 20230810
  35. ACETAMINOPHEN [Concomitant]
     Active Substance: ACETAMINOPHEN
     Indication: Product used for unknown indication
     Dosage: 350 MILLIGRAM, QD
     Route: 048
     Dates: start: 20230828, end: 20230828
  36. HYDROXYZINE [Concomitant]
     Active Substance: HYDROXYZINE HYDROCHLORIDE
     Indication: Product used for unknown indication
     Route: 065
     Dates: start: 20230812, end: 20230818
  37. ATARAX [Concomitant]
     Active Substance: HYDROXYZINE HYDROCHLORIDE
     Indication: Anxiety
     Dosage: 20 MILLIGRAM, QD; ATARAX [HYDROXYZINE]
     Route: 048
     Dates: start: 20230812, end: 20230818
  38. ETOPOSIDE [Suspect]
     Active Substance: ETOPOSIDE
     Indication: B-cell lymphoma
     Dosage: ON 13/AUG/2023 RECEIVED MOST RECENT DOSE (90 MG) OF STUDY DRUG PRIOR TO EVENT
     Route: 042

REACTIONS (1)
  - Cytokine release syndrome [Recovered/Resolved]

NARRATIVE: CASE EVENT DATE: 20230829
